FAERS Safety Report 9240090 (Version 1)
Quarter: 2013Q2

REPORT INFORMATION
  Report Type: Spontaneous
  Country: US (occurrence: None)
  Receive Date: 20130418
  Receipt Date: 20130418
  Transmission Date: 20140414
  Serious: Yes (Hospitalization)
  Sender: FDA-Public Use
  Company Number: None

PATIENT
  Age: 56 Year
  Sex: Male
  Weight: 95.26 kg

DRUGS (2)
  1. DOCETAXEL (TAXOTERE) [Suspect]
     Indication: PROSTATE CANCER METASTATIC
     Route: 048
     Dates: start: 20121113
  2. LAPATINIB [Suspect]
     Indication: PROSTATE CANCER METASTATIC
     Dates: start: 20121113

REACTIONS (15)
  - Diarrhoea [None]
  - Pyrexia [None]
  - Anaemia [None]
  - Urinary tract infection [None]
  - Leukopenia [None]
  - Neutropenia [None]
  - Haematochezia [None]
  - Rectal ulcer [None]
  - Abscess intestinal [None]
  - Mucosal membrane hyperplasia [None]
  - Blood bilirubin increased [None]
  - Megacolon [None]
  - Escherichia test positive [None]
  - Ultrasound abdomen abnormal [None]
  - Prostate cancer [None]
